FAERS Safety Report 4635756-6 (Version None)
Quarter: 2005Q2

REPORT INFORMATION
  Report Type: 
  Country: None (occurrence: None)
  Receive Date: 20050414
  Receipt Date: 20050406
  Transmission Date: 20051028
  Serious: Yes (Hospitalization, Other)
  Sender: FDA-Public Use
  Company Number: 2005048106

PATIENT
  Sex: Female

DRUGS (4)
  1. NIFEDIPINE [Suspect]
     Indication: PRE-ECLAMPSIA
     Dosage: SEE IMAGE
     Route: 048
     Dates: start: 20040304, end: 20040306
  2. NIFEDIPINE [Suspect]
     Indication: PRE-ECLAMPSIA
     Dosage: SEE IMAGE
     Route: 048
     Dates: start: 20040307, end: 20040307
  3. PINDOLOL [Suspect]
     Indication: PRE-ECLAMPSIA
     Dosage: SEE IMAGE
     Route: 048
     Dates: start: 20040304, end: 20040306
  4. PINDOLOL [Suspect]
     Indication: PRE-ECLAMPSIA
     Dosage: SEE IMAGE
     Route: 048
     Dates: start: 20040307, end: 20040307

REACTIONS (11)
  - BLOOD GLUCOSE DECREASED [None]
  - DRUG EXPOSURE DURING PREGNANCY [None]
  - INDUCED LABOUR [None]
  - OXYGEN SATURATION DECREASED [None]
  - PNEUMONIA [None]
  - PNEUMOTHORAX [None]
  - PREMATURE LABOUR [None]
  - PULMONARY HYPERTENSION [None]
  - RESPIRATORY DISORDER NEONATAL [None]
  - RESPIRATORY FAILURE [None]
  - SEPSIS [None]
